FAERS Safety Report 23873283 (Version 1)
Quarter: 2024Q2

REPORT INFORMATION
  Report Type: Spontaneous
  Country: GB (occurrence: GB)
  Receive Date: 20240520
  Receipt Date: 20240520
  Transmission Date: 20240716
  Serious: Yes (Other)
  Sender: FDA-Public Use
  Company Number: GB-MHRA-TPP26416115C22275880YC1715608265338

PATIENT
  Age: 86 Year
  Sex: Female
  Weight: 70 kg

DRUGS (12)
  1. AMLODIPINE [Suspect]
     Active Substance: AMLODIPINE BESYLATE
     Indication: Product used for unknown indication
     Dosage: 1 DOSAGE FORM, ONCE A DAY
     Route: 048
     Dates: start: 20231018
  2. CANDESARTAN [Concomitant]
     Active Substance: CANDESARTAN
     Indication: Product used for unknown indication
     Dosage: 1 DOSAGE FORM, ONCE A DAY,AT NIGHT - TO PUT INTO...
     Route: 065
     Dates: start: 20240304
  3. CLARITHROMYCIN [Concomitant]
     Active Substance: CLARITHROMYCIN
     Indication: Product used for unknown indication
     Dosage: 1 DOSAGE FORM, TWO TIMES A DAY (WITH HOLD SIMVASTAT...)
     Route: 065
     Dates: start: 20240215, end: 20240315
  4. DOXYCYCLINE [Concomitant]
     Active Substance: DOXYCYCLINE
     Indication: Product used for unknown indication
     Dosage: UNK,TWO TO BE TAKEN ON THE FIRST DAY THEN ONE TO BE...
     Route: 065
     Dates: start: 20240327, end: 20240424
  5. FUROSEMIDE [Concomitant]
     Active Substance: FUROSEMIDE
     Indication: Product used for unknown indication
     Dosage: 1 DOSAGE FORM, ONCE A DAY, MORNING AND MEASURE HOME BLOOD PRESSURE AFTER 2 WEEKS
     Route: 065
     Dates: start: 20240417
  6. HYLO FORTE [Concomitant]
     Indication: Product used for unknown indication
     Dosage: 2 GTT DROPS, FOUR TIMES/DAY, ONE DROP FOUR TIMES A DAY TO BOTH EYES - INDEFI...
     Route: 065
     Dates: start: 20230921
  7. LERCANIDIPINE HYDROCHLORIDE [Concomitant]
     Active Substance: LERCANIDIPINE HYDROCHLORIDE
     Indication: Blood pressure measurement
     Dosage: 1 DOSAGE FORM, ONCE A DAY,MORNING
     Route: 065
     Dates: start: 20240513
  8. LEVOTHYROXINE [Concomitant]
     Active Substance: LEVOTHYROXINE\LEVOTHYROXINE SODIUM
     Indication: Product used for unknown indication
     Dosage: 1 DOSAGE FORM, ONCE A DAY,MORNING PREFERABLY 30-60 M...
     Route: 065
     Dates: start: 20230918
  9. OMEPRAZOLE [Concomitant]
     Active Substance: DONEPEZIL HYDROCHLORIDE\OMEPRAZOLE\OMEPRAZOLE MAGNESIUM
     Indication: Product used for unknown indication
     Dosage: 1 DOSAGE FORM, ONCE A DAY,ONE TO BE TAKEN EACH DAY - TAKE 2 HOURS AWAY FR...
     Route: 065
     Dates: start: 20230327
  10. RAMIPRIL [Concomitant]
     Active Substance: RAMIPRIL
     Indication: Product used for unknown indication
     Dosage: 1 DOSAGE FORM, ONCE A DAY,NIGHT
     Route: 065
     Dates: start: 20230417, end: 20240304
  11. SIMVASTATIN [Concomitant]
     Active Substance: SIMVASTATIN
     Indication: Product used for unknown indication
     Dosage: 1 DOSAGE FORM, ONCE A DAY,NIGHT
     Route: 065
     Dates: start: 20230327
  12. Zerobase [Concomitant]
     Indication: Product used for unknown indication
     Dosage: UNK UNK, TWO TIMES A DAY,ON THE SKIN AND AS A SOAP SUBSTITUTE
     Route: 065
     Dates: start: 20230517, end: 20240513

REACTIONS (2)
  - Joint swelling [Unknown]
  - Oedema peripheral [Recovering/Resolving]

NARRATIVE: CASE EVENT DATE: 20240301
